FAERS Safety Report 12245691 (Version 1)
Quarter: 2016Q2

REPORT INFORMATION
  Report Type: Report from Study
  Country: US (occurrence: US)
  Receive Date: 20160407
  Receipt Date: 20160407
  Transmission Date: 20160815
  Serious: Yes (Other)
  Sender: FDA-Public Use
  Company Number: US-BIOGEN-2015BI084885

PATIENT
  Age: 29 Year
  Sex: Female

DRUGS (1)
  1. PLEGRIDY [Suspect]
     Active Substance: PEGINTERFERON BETA-1A
     Indication: MULTIPLE SCLEROSIS
     Route: 058
     Dates: start: 20150527, end: 20150803

REACTIONS (6)
  - Influenza like illness [Not Recovered/Not Resolved]
  - Migraine [Not Recovered/Not Resolved]
  - Nephrolithiasis [Recovered/Resolved]
  - Nausea [Recovered/Resolved]
  - Thyroid disorder [Not Recovered/Not Resolved]
  - Skin erosion [Unknown]

NARRATIVE: CASE EVENT DATE: 20150527
